FAERS Safety Report 10720503 (Version 1)
Quarter: 2015Q1

REPORT INFORMATION
  Report Type: Spontaneous
  Country: IT (occurrence: IT)
  Receive Date: 20150119
  Receipt Date: 20150119
  Transmission Date: 20150721
  Serious: Yes (Other)
  Sender: FDA-Public Use
  Company Number: PHHY2015IT005360

PATIENT
  Age: 53 Year
  Sex: Female

DRUGS (2)
  1. MUSCORIL [Concomitant]
     Active Substance: THIOCOLCHICOSIDE
     Indication: PRODUCT USED FOR UNKNOWN INDICATION
     Dosage: 1 DF(1 POS. UNIT), UNK
     Route: 030
     Dates: start: 20141227, end: 20141227
  2. DICLOFENAC [Suspect]
     Active Substance: DICLOFENAC
     Indication: BACK PAIN
     Dosage: 1 DF(1 POS. UNIT TOTAL), UNK
     Route: 030
     Dates: start: 20141227, end: 20141227

REACTIONS (2)
  - Rash [Recovering/Resolving]
  - Lip oedema [Recovering/Resolving]

NARRATIVE: CASE EVENT DATE: 20141227
